FAERS Safety Report 14860948 (Version 6)
Quarter: 2019Q1

REPORT INFORMATION
  Report Type: Report from Study
  Country: None (occurrence: DE)
  Receive Date: 20180508
  Receipt Date: 20190218
  Transmission Date: 20190417
  Serious: Yes (Death, Life-Threatening, Hospitalization)
  Sender: FDA-Public Use
  Company Number: DE-ABBVIE-18K-062-2346104-00

PATIENT
  Age: 60 Year
  Sex: Female
  Weight: 58 kg

DRUGS (32)
  1. SIMVASTATIN. [Concomitant]
     Active Substance: SIMVASTATIN
     Indication: HYPERCHOLESTEROLAEMIA
     Route: 048
     Dates: start: 2016
  2. DAIVOBET [Concomitant]
     Active Substance: BETAMETHASONE DIPROPIONATE\CALCIPOTRIENE
     Indication: PSORIASIS
     Dosage: AS REQUIRED
     Dates: start: 20180724, end: 20190117
  3. KALINOR [Concomitant]
     Indication: PRODUCT USED FOR UNKNOWN INDICATION
  4. METOPROLOL. [Concomitant]
     Active Substance: METOPROLOL
     Indication: HYPERTENSION
     Route: 048
     Dates: start: 2016
  5. OXIKODON [Concomitant]
     Indication: PAIN
     Route: 048
     Dates: start: 201709
  6. ENSTILAR [Concomitant]
     Active Substance: BETAMETHASONE DIPROPIONATE\CALCIPOTRIENE HYDRATE
     Indication: PSORIASIS
     Dates: start: 20180503
  7. METEX [Concomitant]
     Indication: PRODUCT USED FOR UNKNOWN INDICATION
     Dates: start: 20170718, end: 201803
  8. MEDEXA [Concomitant]
     Active Substance: METHYLPREDNISOLONE
     Indication: PSORIASIS
  9. OTEZLA [Concomitant]
     Active Substance: APREMILAST
     Indication: PSORIASIS
     Route: 048
     Dates: start: 20181010, end: 20190117
  10. OTEZLA [Concomitant]
     Active Substance: APREMILAST
     Indication: PSORIATIC ARTHROPATHY
  11. BELOC ZOK [Concomitant]
     Active Substance: METOPROLOL SUCCINATE
     Indication: PRODUCT USED FOR UNKNOWN INDICATION
  12. BELOC ZOK [Concomitant]
     Active Substance: METOPROLOL SUCCINATE
     Indication: PSORIATIC ARTHROPATHY
  13. NOVAMINSULFON [Concomitant]
     Active Substance: METAMIZOLE
     Indication: PSORIATIC ARTHROPATHY
  14. ASPIRIN. [Concomitant]
     Active Substance: ASPIRIN
     Indication: MYOCARDIAL INFARCTION
     Dates: start: 2016
  15. CLOPIDOGREL [Concomitant]
     Active Substance: CLOPIDOGREL BISULFATE
     Indication: HYPERTENSION
     Dates: start: 2016
  16. DAIVONEX [Concomitant]
     Active Substance: CALCIPOTRIENE
     Indication: PSORIASIS
     Dates: start: 20180724
  17. NOVAMINSULFON [Concomitant]
     Active Substance: METAMIZOLE
     Indication: PRODUCT USED FOR UNKNOWN INDICATION
  18. VALSARTAN. [Concomitant]
     Active Substance: VALSARTAN
     Indication: HYPERTENSION
     Dosage: 150/25 MG/DAY?160/25 MG
     Dates: start: 2016
  19. MTX [Concomitant]
     Active Substance: METHOTREXATE SODIUM
     Indication: PRODUCT USED FOR UNKNOWN INDICATION
     Route: 048
     Dates: start: 20170718
  20. TRAMAL RETARD [Concomitant]
     Active Substance: TRAMADOL
     Indication: PRODUCT USED FOR UNKNOWN INDICATION
  21. FOLIC ACID. [Concomitant]
     Active Substance: FOLIC ACID
     Indication: PRODUCT USED FOR UNKNOWN INDICATION
  22. FOLIC ACID. [Concomitant]
     Active Substance: FOLIC ACID
     Indication: PSORIATIC ARTHROPATHY
  23. HUMIRA [Suspect]
     Active Substance: ADALIMUMAB
     Indication: PSORIATIC ARTHROPATHY
  24. ENSTILAR [Concomitant]
     Active Substance: BETAMETHASONE DIPROPIONATE\CALCIPOTRIENE HYDRATE
     Indication: PSORIASIS
     Dosage: FOAM
     Dates: start: 20180503
  25. MOVICOL [Concomitant]
     Active Substance: POLYETHYLENE GLYCOL 3350\POTASSIUM CHLORIDE\SODIUM BICARBONATE\SODIUM CHLORIDE
     Indication: PSORIATIC ARTHROPATHY
  26. HUMIRA [Suspect]
     Active Substance: ADALIMUMAB
     Indication: PSORIASIS
     Route: 058
     Dates: start: 20170111, end: 20180307
  27. MEDEXA [Concomitant]
     Active Substance: METHYLPREDNISOLONE
     Indication: PSORIATIC ARTHROPATHY
     Dosage: 5MG/7.5MG
     Route: 048
     Dates: start: 20170109, end: 20180307
  28. PREDNISOLON [Concomitant]
     Active Substance: PREDNISOLONE
     Indication: PSORIASIS
     Route: 048
     Dates: start: 20170721
  29. PREDNISOLON [Concomitant]
     Active Substance: PREDNISOLONE
     Indication: PSORIATIC ARTHROPATHY
  30. MOVICOL [Concomitant]
     Active Substance: POLYETHYLENE GLYCOL 3350\POTASSIUM CHLORIDE\SODIUM BICARBONATE\SODIUM CHLORIDE
     Indication: PRODUCT USED FOR UNKNOWN INDICATION
     Dosage: SACHET
  31. KALINOR [Concomitant]
     Indication: PSORIATIC ARTHROPATHY
  32. TRAMAL RETARD [Concomitant]
     Active Substance: TRAMADOL
     Indication: PSORIATIC ARTHROPATHY

REACTIONS (16)
  - Lung adenocarcinoma [Fatal]
  - Normochromic normocytic anaemia [Unknown]
  - Breast enlargement [Unknown]
  - C-reactive protein increased [Recovering/Resolving]
  - Lymphopenia [Unknown]
  - Pulmonary mass [Not Recovered/Not Resolved]
  - Lymphadenopathy [Unknown]
  - Leukoencephalopathy [Unknown]
  - Weight decreased [Recovering/Resolving]
  - Infection [Not Recovered/Not Resolved]
  - General physical health deterioration [Recovering/Resolving]
  - Renal failure [Unknown]
  - Chest pain [Unknown]
  - Brain neoplasm malignant [Fatal]
  - Cholestasis [Unknown]
  - Neoplasm skin [Not Recovered/Not Resolved]

NARRATIVE: CASE EVENT DATE: 201709
